FAERS Safety Report 5354020-3 (Version None)
Quarter: 2007Q2

REPORT INFORMATION
  Report Type: 
  Country: None (occurrence: None)
  Receive Date: 20070521
  Receipt Date: 20070206
  Transmission Date: 20071010
  Serious: No
  Sender: FDA-Public Use
  Company Number: WAES 0702USA00906

PATIENT
  Age: 65 Year
  Sex: Male

DRUGS (8)
  1. JANUVIA [Suspect]
     Indication: DIABETES MELLITUS NON-INSULIN-DEPENDENT
     Dosage: 100 MG/DAILY/PO
     Route: 048
     Dates: start: 20061228
  2. ACCUPRIL [Concomitant]
  3. ACTOS [Concomitant]
  4. GLUCOPHAGE [Concomitant]
  5. GLYNASE [Concomitant]
  6. LIPITOR [Concomitant]
  7. NOVOLIN 50/50 [Concomitant]
  8. ATENOLOL [Concomitant]

REACTIONS (2)
  - EPISTAXIS [None]
  - RHINORRHOEA [None]
